FAERS Safety Report 16273078 (Version 6)
Quarter: 2021Q3

REPORT INFORMATION
  Report Type: Spontaneous
  Country: DE (occurrence: DE)
  Receive Date: 20190506
  Receipt Date: 20210805
  Transmission Date: 20211014
  Serious: Yes (Death, Hospitalization, Other)
  Sender: FDA-Public Use
  Company Number: DE-AUROBINDO-AUR-APL-2019-024258

PATIENT
  Age: 78 Year
  Sex: Male
  Weight: 76 kg

DRUGS (28)
  1. INSULIN HUMAN ISOPHANE [Concomitant]
     Active Substance: INSULIN HUMAN
     Dosage: UP TO NOW 8?0?10
     Route: 058
  2. PANTOPRAZOL HEXAL [Concomitant]
     Active Substance: PANTOPRAZOLE
     Indication: PRODUCT USED FOR UNKNOWN INDICATION
     Dosage: 40 MG, QD (0?0?1?0)
     Route: 065
  3. AZOPT [Concomitant]
     Active Substance: BRINZOLAMIDE
     Indication: PRODUCT USED FOR UNKNOWN INDICATION
     Dosage: 10 MG/ML, (1 EVERY 15 MINUTES)
     Route: 065
  4. METOHEXAL SUCC [Concomitant]
     Active Substance: METOPROLOL SUCCINATE
     Indication: PRODUCT USED FOR UNKNOWN INDICATION
     Dosage: 47.5 MILLIGRAM, TWO TIMES A DAY
     Route: 065
  5. PROTAPHANE [Concomitant]
     Active Substance: INSULIN HUMAN
     Indication: BLOOD GLUCOSE ABNORMAL
     Dosage: 100 IE/ML (15 IE AT 6 AM AND AT 10 PM)
     Route: 065
     Dates: start: 200103
  6. VALSARTAN PUREN [Concomitant]
     Active Substance: VALSARTAN
     Indication: PRODUCT USED FOR UNKNOWN INDICATION
     Dosage: 40 MILLIGRAM, TWO TIMES A DAY (2?0?0?0)
     Route: 065
  7. VALSARTAN AND HYDROCHLOROTHIAZIDE [Concomitant]
     Active Substance: HYDROCHLOROTHIAZIDE\VALSARTAN
     Indication: HYPERTENSION
     Dosage: 1 DOSAGE FORM, ONCE A DAY (??0?0, DAILY)
     Route: 058
  8. MCP AL [Concomitant]
     Indication: PRODUCT USED FOR UNKNOWN INDICATION
     Dosage: 100 MILLIGRAM, 3 TIMES A DAY(10 MG, TID (1?1?1?0)
     Route: 065
  9. METOPROLOL. [Concomitant]
     Active Substance: METOPROLOL
     Indication: PRODUCT USED FOR UNKNOWN INDICATION
     Dosage: 100 MG (??0??)
     Route: 048
  10. VALSARTAN AND HYDROCHLOROTHIAZIDE [Concomitant]
     Active Substance: HYDROCHLOROTHIAZIDE\VALSARTAN
     Dosage: 0.5 DOSAGE FORM, ONCE A DAY
     Route: 058
  11. VALSARTAN. [Suspect]
     Active Substance: VALSARTAN
     Indication: HYPERTENSION
     Dosage: 80 OT, UNK
     Route: 048
  12. TOREM [Concomitant]
     Active Substance: TORSEMIDE
     Indication: PRODUCT USED FOR UNKNOWN INDICATION
     Dosage: 5 MILLIGRAM, ONCE A DAY
     Route: 065
  13. ACTRAPID [Concomitant]
     Active Substance: INSULIN HUMAN
     Indication: BLOOD GLUCOSE ABNORMAL
     Dosage: 100 IE/ML, (8 IE?0, IE?10, IE?0 IE)
     Route: 016
     Dates: start: 201512
  14. GILOTRIF [Concomitant]
     Active Substance: AFATINIB
     Indication: PRODUCT USED FOR UNKNOWN INDICATION
     Dosage: 20 MILLIGRAM
     Route: 065
  15. HCT HEXAL [Concomitant]
     Active Substance: HYDROCHLOROTHIAZIDE
     Indication: PRODUCT USED FOR UNKNOWN INDICATION
     Dosage: 12.5 MG, QD (1?0?0?0)
     Route: 065
  16. INSULIN HUMAN ISOPHANE [Concomitant]
     Active Substance: INSULIN HUMAN
     Indication: PRODUCT USED FOR UNKNOWN INDICATION
     Dosage: 15?0?0?15
     Route: 058
  17. METOPROLOL. [Concomitant]
     Active Substance: METOPROLOL
     Dosage: 100 MILLIGRAM, ONCE A DAY
     Route: 048
     Dates: start: 2000
  18. NOVAMINSULFON?RATIOPHARM [Concomitant]
     Active Substance: METAMIZOLE
     Indication: PRODUCT USED FOR UNKNOWN INDICATION
     Dosage: 46 GTT DROPS, FOUR TIMES/DAY
     Route: 065
  19. TORASEMIDE [Concomitant]
     Active Substance: TORSEMIDE
     Indication: PRODUCT USED FOR UNKNOWN INDICATION
     Dosage: 0.5 DOSAGE FORM (0.5 DF, QD (??0?0)
     Route: 065
     Dates: start: 201802
  20. TORASEMID HEXAL [Concomitant]
     Active Substance: TORSEMIDE
     Indication: PRODUCT USED FOR UNKNOWN INDICATION
     Dosage: 5 MILLIGRAM, ONCE A DAY
     Route: 065
  21. VALSARTAN HEXAL COMP [Suspect]
     Active Substance: HYDROCHLOROTHIAZIDE\VALSARTAN
     Indication: PRODUCT USED FOR UNKNOWN INDICATION
     Dosage: 160/12.5 UNK(VALSARTAN 160/ HYDROCHLOROTHIAZIDE12.5)
     Route: 065
     Dates: start: 20120712, end: 20180727
  22. DICLOFENAC RATIOPHARM [Concomitant]
     Active Substance: DICLOFENAC
     Indication: PRODUCT USED FOR UNKNOWN INDICATION
     Dosage: 50 MILLIGRAM, FOUR TIMES/DAY
     Route: 065
  23. VALSARTAN 1A PHARMA [Suspect]
     Active Substance: VALSARTAN
     Indication: HYPERTENSION
     Dosage: UNK
     Route: 065
     Dates: start: 20120216
  24. BRINZOLAMIDE [Concomitant]
     Active Substance: BRINZOLAMIDE
     Indication: PRODUCT USED FOR UNKNOWN INDICATION
     Dosage: UNK, TWO TIMES A DAY, 1?0?1
     Route: 065
  25. DEXA [Concomitant]
     Indication: PRODUCT USED FOR UNKNOWN INDICATION
     Dosage: 12 MILLIGRAM, ONCE A DAY(4 MG, TID (1?1?1?0)
     Route: 065
     Dates: start: 20190128
  26. NOVAMINSULFON?RATIOPHARM [Concomitant]
     Active Substance: METAMIZOLE
     Dosage: 160 GTT DROPS, ONCE A DAY
     Route: 065
  27. PARACETAMOL RATIOPHARM [Concomitant]
     Active Substance: ACETAMINOPHEN
     Indication: PRODUCT USED FOR UNKNOWN INDICATION
     Dosage: 500 MG, (1?2 TABLETS UP TO 4TIMES PER DAY)
     Route: 065
  28. VALSARTAN PUREN [Concomitant]
     Active Substance: VALSARTAN
     Dosage: 2 DOSAGE FORM, ONCE A DAY(2 DF, QD (2?0?0?0)
     Route: 065

REACTIONS (22)
  - Bronchial carcinoma [Fatal]
  - Feeling abnormal [Unknown]
  - Cardiac aneurysm [Unknown]
  - Ventricular hypokinesia [Unknown]
  - Death [Fatal]
  - General physical health deterioration [Fatal]
  - Lung neoplasm malignant [Not Recovered/Not Resolved]
  - Balance disorder [Unknown]
  - Metastases to central nervous system [Unknown]
  - Breath sounds abnormal [Fatal]
  - Coordination abnormal [Fatal]
  - Dyspnoea exertional [Fatal]
  - Left ventricular dysfunction [Unknown]
  - Malignant pleural effusion [Fatal]
  - Pleural effusion [Fatal]
  - Malignant neoplasm of pleura [Fatal]
  - Dyspnoea [Fatal]
  - Asthenia [Fatal]
  - Chilaiditi^s syndrome [Unknown]
  - Effusion [Fatal]
  - Aspiration pleural cavity [Fatal]
  - Pneumothorax [Unknown]

NARRATIVE: CASE EVENT DATE: 2018
